FAERS Safety Report 7545452-3 (Version None)
Quarter: 2011Q2

REPORT INFORMATION
  Report Type: 
  Country: None (occurrence: None)
  Receive Date: 20110613
  Receipt Date: 20110613
  Transmission Date: 20111010
  Serious: Yes (Hospitalization)
  Sender: FDA-Public Use
  Company Number: None

PATIENT
  Sex: Female
  Weight: 57.72 kg

DRUGS (2)
  1. CISPLATIN [Suspect]
     Dosage: 81 MG
  2. PEMETREXED [Suspect]
     Dosage: 805 MG

REACTIONS (11)
  - PLATELET COUNT DECREASED [None]
  - BACTERIAL TEST POSITIVE [None]
  - BLOOD SODIUM DECREASED [None]
  - POLLAKIURIA [None]
  - HAEMOGLOBIN DECREASED [None]
  - HAEMATURIA [None]
  - BLOOD ALBUMIN DECREASED [None]
  - HAEMATOCRIT DECREASED [None]
  - HYDRONEPHROSIS [None]
  - METASTASES TO PELVIS [None]
  - REFUSAL OF TREATMENT BY PATIENT [None]
